FAERS Safety Report 9440909 (Version 2)
Quarter: 2013Q3

REPORT INFORMATION
  Report Type: Spontaneous
  Country: US (occurrence: None)
  Receive Date: 20130801
  Receipt Date: 20130827
  Transmission Date: 20140515
  Serious: Yes (Other)
  Sender: FDA-Public Use
  Company Number: JPI-P-034050

PATIENT
  Age: 65 Year
  Sex: Female

DRUGS (1)
  1. XYREM [Suspect]
     Indication: CATAPLEXY
     Route: 048
     Dates: start: 20100330

REACTIONS (5)
  - Fall [None]
  - Laceration [None]
  - Haemorrhage [None]
  - Laceration [None]
  - Pain [None]
